FAERS Safety Report 4284762-2 (Version None)
Quarter: 2004Q1

REPORT INFORMATION
  Report Type: 
  Country: None (occurrence: None)
  Receive Date: 20040202
  Receipt Date: 20040120
  Transmission Date: 20041129
  Serious: Yes (Death, Hospitalization, Other)
  Sender: FDA-Public Use
  Company Number: 2003111876

PATIENT
  Age: 79 Year
  Sex: Male
  Weight: 50 kg

DRUGS (4)
  1. DIFLUCAN [Suspect]
     Indication: OESOPHAGEAL CANDIDIASIS
     Dosage: 200 MG (DAILY), INTRAVENOUS
     Route: 042
     Dates: start: 20030911, end: 20031008
  2. CLINDAMYCIN (CLINDAMYCIN) [Suspect]
     Indication: PNEUMONIA BACTERIAL
     Dosage: 1200 MG (BID), INTRAVENOUS
     Route: 042
     Dates: start: 20030917, end: 20031001
  3. VANCOMYCIN HCL [Suspect]
     Indication: STAPHYLOCOCCAL INFECTION
     Dosage: INTRAVENOUS
     Route: 042
     Dates: start: 20030929, end: 20031010
  4. ARBEKACIN (ARBEKACIN) [Concomitant]

REACTIONS (25)
  - BLOOD CALCIUM DECREASED [None]
  - BLOOD CHLORIDE DECREASED [None]
  - BLOOD CHLORIDE INCREASED [None]
  - BLOOD CREATINE PHOSPHOKINASE INCREASED [None]
  - BLOOD POTASSIUM INCREASED [None]
  - CACHEXIA [None]
  - COOMBS TEST POSITIVE [None]
  - DEHYDRATION [None]
  - DEPRESSED LEVEL OF CONSCIOUSNESS [None]
  - DIARRHOEA [None]
  - DRUG ERUPTION [None]
  - GENERALISED OEDEMA [None]
  - HAEMOLYTIC ANAEMIA [None]
  - HEPATIC FAILURE [None]
  - IMMUNODEFICIENCY [None]
  - ISCHAEMIC HEPATITIS [None]
  - METABOLIC ACIDOSIS [None]
  - MULTI-ORGAN FAILURE [None]
  - PNEUMONIA ASPIRATION [None]
  - PROTEIN TOTAL ABNORMAL [None]
  - RENAL IMPAIRMENT [None]
  - STOOLS WATERY [None]
  - VIRAL INFECTION [None]
  - VOLUME BLOOD DECREASED [None]
  - WHITE BLOOD CELL COUNT DECREASED [None]
